FAERS Safety Report 9397686 (Version 1)
Quarter: 2013Q3

REPORT INFORMATION
  Report Type: Spontaneous
  Country: US (occurrence: None)
  Receive Date: 20130711
  Receipt Date: 20130711
  Transmission Date: 20140515
  Serious: Yes (Other)
  Sender: FDA-Public Use
  Company Number: None

PATIENT
  Age: 60 Year
  Sex: Female
  Weight: 94.8 kg

DRUGS (3)
  1. CYMBALTA [Suspect]
     Indication: NEUROPATHY PERIPHERAL
     Dosage: 1
     Dates: start: 20130710, end: 20130710
  2. GABAPENTIN [Concomitant]
  3. METFORMIN [Concomitant]

REACTIONS (5)
  - Anxiety [None]
  - Depression [None]
  - Crying [None]
  - Tremor [None]
  - Fear [None]
